FAERS Safety Report 8626596 (Version 2)
Quarter: 2013Q3

REPORT INFORMATION
  Report Type: Spontaneous
  Country: US (occurrence: US)
  Receive Date: 20120620
  Receipt Date: 20130822
  Transmission Date: 20140515
  Serious: No
  Sender: FDA-Public Use
  Company Number: US-ASTRAZENECA-2012SE24216

PATIENT
  Age: 58 Year
  Sex: Male
  Weight: 77.1 kg

DRUGS (5)
  1. SYMBICORT PMDI [Suspect]
     Indication: CHRONIC OBSTRUCTIVE PULMONARY DISEASE
     Dosage: 2 PUFFS 160/4.5 MCG, TWO TIMES A DAY
     Route: 055
  2. SYMBICORT PMDI [Suspect]
     Indication: DYSPNOEA
     Dosage: 2 PUFFS 160/4.5 MCG, TWO TIMES A DAY
     Route: 055
  3. HYDROCODONE [Concomitant]
     Indication: ANALGESIC THERAPY
  4. VALIUM [Concomitant]
     Indication: SEDATION
  5. PROAIR [Concomitant]

REACTIONS (4)
  - Dyspnoea [Unknown]
  - Adverse event [Unknown]
  - Drug dose omission [Unknown]
  - Drug dispensing error [Unknown]
